FAERS Safety Report 26174295 (Version 1)
Quarter: 2025Q4

REPORT INFORMATION
  Report Type: Spontaneous
  Country: US (occurrence: US)
  Receive Date: 20251218
  Receipt Date: 20251218
  Transmission Date: 20260117
  Serious: No
  Sender: SANOFI AVENTIS
  Company Number: US-SA-2025SA374103

PATIENT
  Sex: Male
  Weight: 28.18 kg

DRUGS (2)
  1. DUPIXENT [Suspect]
     Active Substance: DUPILUMAB
     Indication: Dermatitis atopic
     Dosage: 300 MG, Q4W
     Route: 058
     Dates: start: 202311
  2. OREGANO LEAF OIL [Concomitant]
     Active Substance: OREGANO LEAF OIL
     Dosage: UNK

REACTIONS (2)
  - Fungal infection [Unknown]
  - Dry skin [Not Recovered/Not Resolved]
